FAERS Safety Report 12706153 (Version 2)
Quarter: 2016Q3

REPORT INFORMATION
  Report Type: Spontaneous
  Country: US (occurrence: US)
  Receive Date: 20160901
  Receipt Date: 20160901
  Transmission Date: 20161109
  Serious: No
  Sender: FDA-Public Use
  Company Number: US-JAZZ-2016-US-008102

PATIENT
  Sex: Female

DRUGS (29)
  1. ERYTHROMYCIN. [Concomitant]
     Active Substance: ERYTHROMYCIN
  2. VITAMIN D [Concomitant]
     Active Substance: CHOLECALCIFEROL
  3. CLINDAGEL [Concomitant]
     Active Substance: CLINDAMYCIN PHOSPHATE
  4. KLOR-CON M10 [Concomitant]
     Active Substance: POTASSIUM CHLORIDE
  5. CILOSTAZOL. [Concomitant]
     Active Substance: CILOSTAZOL
  6. DOXYCYCLINE HYCLATE. [Concomitant]
     Active Substance: DOXYCYCLINE HYCLATE
  7. MINOCYCLINE [Concomitant]
     Active Substance: MINOCYCLINE\MINOCYCLINE HYDROCHLORIDE
  8. NORCO [Concomitant]
     Active Substance: ACETAMINOPHEN\HYDROCODONE BITARTRATE
  9. ZOFRAN [Concomitant]
     Active Substance: ONDANSETRON HYDROCHLORIDE
  10. NASONEX [Concomitant]
     Active Substance: MOMETASONE FUROATE
  11. BETAINE [Concomitant]
     Active Substance: BETAINE
  12. PEPTAMEN AF [Concomitant]
  13. PERCOCET [Concomitant]
     Active Substance: ACETAMINOPHEN\OXYCODONE HYDROCHLORIDE
  14. MERIVA [Concomitant]
  15. PANTOPRAZOLE SODIUM. [Concomitant]
     Active Substance: PANTOPRAZOLE SODIUM
  16. NUVIGIL [Concomitant]
     Active Substance: ARMODAFINIL
  17. XYREM [Suspect]
     Active Substance: SODIUM OXYBATE
     Indication: CATAPLEXY
  18. VITAMIN B12 [Concomitant]
     Active Substance: CYANOCOBALAMIN
  19. INSULIN [Concomitant]
     Active Substance: INSULIN NOS
  20. ZOFRAN [Concomitant]
     Active Substance: ONDANSETRON HYDROCHLORIDE
  21. DRONABINOL. [Concomitant]
     Active Substance: DRONABINOL
  22. XYREM [Suspect]
     Active Substance: SODIUM OXYBATE
     Indication: NARCOLEPSY
     Dosage: 3 G, BID
     Route: 048
     Dates: start: 201411
  23. ALPHA LIPOIC ACID [Concomitant]
     Active Substance: .ALPHA.-LIPOIC ACID
  24. DRONABINOL. [Concomitant]
     Active Substance: DRONABINOL
  25. ALAVERT ALLERGY + SINUS D-12 [Concomitant]
  26. DIPANE [Concomitant]
  27. GABAPENTIN. [Concomitant]
     Active Substance: GABAPENTIN
  28. PEPSIN [Concomitant]
     Active Substance: PEPSIN
  29. VIBRAMYCIN [Concomitant]
     Active Substance: DOXYCYCLINE

REACTIONS (1)
  - Peripheral vascular disorder [Unknown]
